FAERS Safety Report 10195512 (Version 4)
Quarter: 2014Q3

REPORT INFORMATION
  Report Type: Report from Study
  Country: CO (occurrence: CO)
  Receive Date: 20140526
  Receipt Date: 20140821
  Transmission Date: 20150326
  Serious: Yes (Other)
  Sender: FDA-Public Use
  Company Number: CO-BRISTOL-MYERS SQUIBB COMPANY-20384160

PATIENT
  Age: 67 Year

DRUGS (2)
  1. CETUXIMAB [Suspect]
     Active Substance: CETUXIMAB
     Indication: SQUAMOUS CELL CARCINOMA OF HEAD AND NECK
     Dosage: 250MG/M2,INTRAVENOUS INFUSION
     Route: 042
     Dates: start: 20071203, end: 20080114
  2. CISPLATIN. [Suspect]
     Active Substance: CISPLATIN
     Indication: SQUAMOUS CELL CARCINOMA OF HEAD AND NECK
     Route: 042

REACTIONS (2)
  - Cachexia [Unknown]
  - Decreased appetite [Unknown]

NARRATIVE: CASE EVENT DATE: 20080115
